FAERS Safety Report 17621132 (Version 1)
Quarter: 2020Q2

REPORT INFORMATION
  Report Type: Spontaneous
  Country: SE (occurrence: SE)
  Receive Date: 20200403
  Receipt Date: 20200403
  Transmission Date: 20200713
  Serious: Yes (Life-Threatening)
  Sender: FDA-Public Use
  Company Number: SE-TEVA-2020-SE-1217603

PATIENT
  Age: 42 Year
  Sex: Female
  Weight: 77 kg

DRUGS (1)
  1. GABAPENTIN ACTAVIS 300 MG KAPSEL, HARD [Suspect]
     Active Substance: GABAPENTIN
     Indication: ANALGESIC THERAPY
     Dosage: 1 CAPSULE THREE TIMES A DAY FOR 7 DAYS 1051899, 900 MG
     Route: 065
     Dates: start: 202002, end: 202002

REACTIONS (7)
  - Anxiety [Recovering/Resolving]
  - Headache [Recovering/Resolving]
  - Oral mucosal blistering [Recovering/Resolving]
  - Nausea [Recovering/Resolving]
  - Hypoaesthesia [Recovering/Resolving]
  - Tinnitus [Recovering/Resolving]
  - Dizziness [Recovering/Resolving]

NARRATIVE: CASE EVENT DATE: 202002
